FAERS Safety Report 19280925 (Version 2)
Quarter: 2021Q3

REPORT INFORMATION
  Report Type: Spontaneous
  Country: US (occurrence: US)
  Receive Date: 20210520
  Receipt Date: 20210819
  Transmission Date: 20211014
  Serious: No
  Sender: FDA-Public Use
  Company Number: US-REDHILL BIOPHARMA-2021RDH00062

PATIENT
  Sex: Female

DRUGS (3)
  1. UNSPECIFIED ANTI?NAUSEA MEDICATION [Concomitant]
  2. TALICIA [Suspect]
     Active Substance: AMOXICILLIN\OMEPRAZOLE MAGNESIUM\RIFABUTIN
     Indication: HELICOBACTER INFECTION
     Dosage: 4 CAPSULES, 3X/DAY (EVERY 8 HOURS)
     Dates: start: 2021, end: 2021
  3. UNSPECIFIED CHEMOTHERAPY [Suspect]
     Active Substance: UNSPECIFIED INGREDIENT

REACTIONS (4)
  - Feeling abnormal [Not Recovered/Not Resolved]
  - Nausea [Not Recovered/Not Resolved]
  - Rash [Unknown]
  - Dizziness [Not Recovered/Not Resolved]

NARRATIVE: CASE EVENT DATE: 2021
